FAERS Safety Report 8827691 (Version 1)
Quarter: 2012Q4

REPORT INFORMATION
  Report Type: 
  Country: US (occurrence: US)
  Receive Date: 20121008
  Receipt Date: 20121008
  Transmission Date: 20130627
  Serious: No
  Sender: FDA-Public Use
  Company Number: US-PFIZER INC-2012245073

PATIENT
  Age: 78 Year
  Sex: Female
  Weight: 85.26 kg

DRUGS (2)
  1. TOVIAZ [Suspect]
     Indication: URINARY INCONTINENCE
     Dosage: 8 mg, 1x/day
     Route: 048
     Dates: start: 20120928
  2. SYNTHROID [Concomitant]
     Dosage: UNK

REACTIONS (2)
  - Burning sensation [Recovered/Resolved]
  - Feeling hot [Recovered/Resolved]
